FAERS Safety Report 4893368-3 (Version None)
Quarter: 2006Q1

REPORT INFORMATION
  Report Type: 
  Country: None (occurrence: None)
  Receive Date: 20060124
  Receipt Date: 20051229
  Transmission Date: 20060701
  Serious: Yes (Congenital Anomaly)
  Sender: FDA-Public Use
  Company Number: 2006008828

PATIENT

DRUGS (1)
  1. SERTRALINE [Suspect]
     Indication: ILL-DEFINED DISORDER
     Route: 064

REACTIONS (2)
  - CONGENITAL CARDIOVASCULAR ANOMALY [None]
  - DRUG EXPOSURE DURING PREGNANCY [None]
